FAERS Safety Report 4906561-8 (Version None)
Quarter: 2006Q1

REPORT INFORMATION
  Report Type: 
  Country: None (occurrence: None)
  Receive Date: 20060209
  Receipt Date: 20060130
  Transmission Date: 20060701
  Serious: Yes (Hospitalization, Other)
  Sender: FDA-Public Use
  Company Number: FR-BRISTOL-MYERS SQUIBB COMPANY-13264585

PATIENT
  Age: 41 Year
  Sex: Female
  Weight: 61 kg

DRUGS (3)
  1. VIDEX [Suspect]
     Indication: HIV INFECTION
     Route: 048
     Dates: start: 19981208, end: 20050615
  2. VIRAMUNE [Suspect]
     Dates: start: 19980815, end: 20050615
  3. KALETRA [Suspect]
     Dates: start: 20010115

REACTIONS (12)
  - ABORTION INDUCED [None]
  - BILIARY FIBROSIS [None]
  - DRUG EXPOSURE DURING PREGNANCY [None]
  - HEPATIC CIRRHOSIS [None]
  - HEPATITIS A POSITIVE [None]
  - MELAENA [None]
  - PAIN [None]
  - PELIOSIS HEPATIS [None]
  - PORTAL HYPERTENSION [None]
  - PORTAL VEIN THROMBOSIS [None]
  - PREGNANCY [None]
  - VARICES OESOPHAGEAL [None]
